FAERS Safety Report 7463160-4 (Version None)
Quarter: 2011Q2

REPORT INFORMATION
  Report Type: 
  Country: None (occurrence: None)
  Receive Date: 20110506
  Receipt Date: 20110503
  Transmission Date: 20111010
  Serious: Yes (Hospitalization, Other)
  Sender: FDA-Public Use
  Company Number: US-PFIZER INC-2011012851

PATIENT
  Sex: Male

DRUGS (5)
  1. NEXIUM [Concomitant]
     Indication: GASTROOESOPHAGEAL REFLUX DISEASE
     Dosage: UNK
     Dates: start: 20020101, end: 20090101
  2. CHANTIX [Suspect]
     Indication: SMOKING CESSATION THERAPY
     Dosage: 0.5MG TO 1MG PER DAY
     Dates: start: 20080101, end: 20080201
  3. VICODIN [Concomitant]
     Indication: PAIN
     Dosage: UNK
     Dates: start: 19900101
  4. ALBUTEROL [Concomitant]
     Indication: CHRONIC OBSTRUCTIVE PULMONARY DISEASE
     Dosage: UNK
     Dates: start: 20020101
  5. HYDROCODONE [Concomitant]
     Indication: PAIN
     Dosage: UNK
     Dates: start: 20020101

REACTIONS (4)
  - INTENTIONAL OVERDOSE [None]
  - CONVULSION [None]
  - DEPRESSION [None]
  - SUICIDE ATTEMPT [None]
